FAERS Safety Report 20299682 (Version 1)
Quarter: 2022Q1

REPORT INFORMATION
  Report Type: Other
  Country: US (occurrence: None)
  Receive Date: 20220105
  Receipt Date: 20220105
  Transmission Date: 20220423
  Serious: No
  Sender: FDA-Public Use
  Company Number: US-ROCHE-2995798

PATIENT
  Sex: Female

DRUGS (2)
  1. OCREVUS [Suspect]
     Active Substance: OCRELIZUMAB
     Indication: Multiple sclerosis
     Dosage: ADDITIONAL DATES OF TREATMENT: 03/JUL/2019, 18/DEC/2019, 18/JUN/2020, 18/DEC/2020, 23/JUN/2021?INFUS
     Route: 042
     Dates: start: 20190619
  2. COPAXONE [Concomitant]
     Active Substance: GLATIRAMER ACETATE
     Indication: Multiple sclerosis

REACTIONS (2)
  - Gastric disorder [Unknown]
  - COVID-19 [Unknown]
